FAERS Safety Report 5443589-6 (Version None)
Quarter: 2007Q3

REPORT INFORMATION
  Report Type: 
  Country: None (occurrence: None)
  Receive Date: 20070905
  Receipt Date: 20070824
  Transmission Date: 20080115
  Serious: Yes (Other)
  Sender: FDA-Public Use
  Company Number: GB-ASTRAZENECA-2007GB01751

PATIENT
  Age: 38 Year
  Sex: Female

DRUGS (4)
  1. SEROQUEL [Suspect]
     Indication: MANIA
     Dosage: 2/1 CYCLICAL
     Route: 048
     Dates: start: 20070724, end: 20070730
  2. SEROQUEL [Suspect]
     Indication: PSYCHOTIC DISORDER
     Dosage: 2/1 CYCLICAL
     Route: 048
     Dates: start: 20070724, end: 20070730
  3. DEPAKOTE [Concomitant]
     Route: 048
     Dates: start: 20070725
  4. HALOPERIDOL [Concomitant]
     Indication: PSYCHOTIC DISORDER
     Route: 048

REACTIONS (2)
  - DISCOMFORT [None]
  - OEDEMA PERIPHERAL [None]
